FAERS Safety Report 9678400 (Version 3)
Quarter: 2014Q1

REPORT INFORMATION
  Report Type: Spontaneous
  Country: IE (occurrence: None)
  Receive Date: 20131106
  Receipt Date: 20140227
  Transmission Date: 20141002
  Serious: Yes (Hospitalization, Other)
  Sender: FDA-Public Use
  Company Number: DSM-2013-01031

PATIENT
  Age: 64 Year
  Sex: Male
  Weight: 70 kg

DRUGS (4)
  1. KONVERGE [Suspect]
     Indication: HYPERTENSION
     Route: 048
     Dates: start: 20130121, end: 201311
  2. NUSEAL ASPIRIN (AETYLSALICYLIC ACID) (ACEYTLSALICYLIC ACID) [Concomitant]
  3. ESOMEPRAZOLE (ESOMEPRAZOLE) (ESOMEPRAZOLE) [Concomitant]
  4. NEBIVOLOL (NEBIVOLOL) (NEBIVOLOL) [Suspect]

REACTIONS (1)
  - Hyponatraemia [None]
